FAERS Safety Report 4773226-5 (Version None)
Quarter: 2005Q3

REPORT INFORMATION
  Report Type: 
  Country: None (occurrence: None)
  Receive Date: 20050919
  Receipt Date: 20050629
  Transmission Date: 20060218
  Serious: Yes (Hospitalization, Other)
  Sender: FDA-Public Use
  Company Number: US-MERCK-0507USA00212

PATIENT
  Age: 61 Year
  Sex: Female
  Weight: 82 kg

DRUGS (4)
  1. VIOXX [Suspect]
     Indication: POLYARTHRITIS
     Route: 048
     Dates: start: 20000502, end: 20040218
  2. INSULIN [Concomitant]
     Indication: DIABETES MELLITUS
     Route: 051
  3. PREMPRO [Concomitant]
     Route: 048
  4. LIPITOR [Concomitant]
     Route: 048

REACTIONS (27)
  - ARTHROPATHY [None]
  - ASTHMA [None]
  - BRONCHITIS ACUTE [None]
  - COUGH [None]
  - DYSPNOEA [None]
  - EAR DISCOMFORT [None]
  - EMBOLISM [None]
  - EPISTAXIS [None]
  - GLAUCOMA [None]
  - GLAUCOMA SURGERY [None]
  - LOCAL SWELLING [None]
  - LUNG NEOPLASM [None]
  - NASAL CONGESTION [None]
  - NASOPHARYNGITIS [None]
  - OEDEMA PERIPHERAL [None]
  - OSTEOPENIA [None]
  - PAIN IN EXTREMITY [None]
  - PANIC DISORDER [None]
  - PLANTAR FASCIITIS [None]
  - PLATELET COUNT INCREASED [None]
  - PROTHROMBIN TIME SHORTENED [None]
  - PULMONARY CONGESTION [None]
  - PULMONARY EMBOLISM [None]
  - RHINORRHOEA [None]
  - SINUS TACHYCARDIA [None]
  - THROMBOSIS [None]
  - VENOUS THROMBOSIS [None]
